FAERS Safety Report 20630978 (Version 1)
Quarter: 2022Q1

REPORT INFORMATION
  Report Type: Spontaneous
  Country: ES (occurrence: ES)
  Receive Date: 20220324
  Receipt Date: 20220324
  Transmission Date: 20220423
  Serious: Yes (Hospitalization)
  Sender: FDA-Public Use
  Company Number: None

PATIENT
  Age: 26 Year
  Sex: Male

DRUGS (4)
  1. STELARA [Suspect]
     Active Substance: USTEKINUMAB
     Indication: Hidradenitis
     Route: 058
     Dates: start: 20211018, end: 20211108
  2. COMIRNATY [Concomitant]
     Active Substance: TOZINAMERAN
     Indication: COVID-19 immunisation
     Dates: start: 20210814, end: 20210814
  3. COMIRNATY [Concomitant]
     Active Substance: TOZINAMERAN
     Dates: start: 20210724, end: 20210724
  4. COMIRNATY [Concomitant]
     Active Substance: TOZINAMERAN
     Dates: start: 20211018, end: 20211018

REACTIONS (1)
  - Crohn^s disease [Not Recovered/Not Resolved]

NARRATIVE: CASE EVENT DATE: 20211109
